FAERS Safety Report 7177728-6 (Version None)
Quarter: 2010Q4

REPORT INFORMATION
  Report Type: 
  Country: None (occurrence: None)
  Receive Date: 20101220
  Receipt Date: 20100601
  Transmission Date: 20110411
  Serious: Yes (Other)
  Sender: FDA-Public Use
  Company Number: EG-GENZYME-CERZ-1001706

PATIENT
  Age: 13 Year
  Sex: Male

DRUGS (2)
  1. CEREZYME [Suspect]
     Indication: GAUCHER'S DISEASE
     Dosage: 20 U/KG, Q2W
     Route: 042
     Dates: start: 19990101
  2. CEREZYME [Suspect]
     Dosage: 30 U/KG, UNK

REACTIONS (4)
  - AORTIC VALVE DISEASE [None]
  - ARRHYTHMIA [None]
  - DECREASED ACTIVITY [None]
  - SYNCOPE [None]
